FAERS Safety Report 4640140-5 (Version None)
Quarter: 2005Q2

REPORT INFORMATION
  Report Type: 
  Country: None (occurrence: None)
  Receive Date: 20050420
  Receipt Date: 20001023
  Transmission Date: 20051028
  Serious: Yes (Disabling)
  Sender: FDA-Public Use
  Company Number: US-MERCK-00101954

PATIENT
  Age: 75 Year
  Sex: Female

DRUGS (9)
  1. FOSAMAX [Suspect]
     Indication: OSTEOPOROSIS
     Route: 048
     Dates: start: 20000901
  2. FOSAMAX [Suspect]
     Route: 048
     Dates: start: 20020101
  3. FOSAMAX [Suspect]
     Route: 048
  4. OS-CAL [Concomitant]
     Route: 065
  5. MULTIVITAMIN [Concomitant]
     Route: 065
  6. VITAMIN E [Concomitant]
     Route: 065
  7. TOPROL-XL [Concomitant]
     Route: 065
  8. DITROPAN [Concomitant]
     Route: 065
  9. ACCUPRIL [Concomitant]
     Route: 065

REACTIONS (4)
  - DIZZINESS [None]
  - HYPERTENSION [None]
  - HYPOTENSION [None]
  - RHINORRHOEA [None]
